FAERS Safety Report 6545491-5 (Version None)
Quarter: 2010Q1

REPORT INFORMATION
  Report Type: 
  Country: None (occurrence: None)
  Receive Date: 20100119
  Receipt Date: 20100108
  Transmission Date: 20100710
  Serious: Yes (Hospitalization, Other)
  Sender: FDA-Public Use
  Company Number: 2009SP042075

PATIENT
  Age: 39 Year
  Sex: Female
  Weight: 74.3899 kg

DRUGS (7)
  1. TEMOZOLOMIDE [Suspect]
     Indication: METASTATIC MALIGNANT MELANOMA
     Dosage: ; PO
     Route: 048
     Dates: start: 20091019
  2. TEMOZOLOMIDE [Suspect]
     Indication: METASTATIC MALIGNANT MELANOMA
     Dosage: 2 DF; QD; PO
     Route: 048
     Dates: start: 20091019
  3. TRAMADOL [Concomitant]
  4. PROCHLORPERAZINE [Concomitant]
  5. EDISYLATE [Concomitant]
  6. ONDANSETRON [Concomitant]
  7. PROMETHAZINE [Concomitant]

REACTIONS (10)
  - BLOOD BILIRUBIN UNCONJUGATED INCREASED [None]
  - BLOOD POTASSIUM DECREASED [None]
  - FATIGUE [None]
  - HAEMATOCRIT DECREASED [None]
  - HAEMOGLOBIN DECREASED [None]
  - LYMPHOCYTE PERCENTAGE DECREASED [None]
  - MALAISE [None]
  - NAUSEA [None]
  - TRANSFERRIN SATURATION DECREASED [None]
  - VOMITING [None]
